FAERS Safety Report 14147900 (Version 5)
Quarter: 2020Q1

REPORT INFORMATION
  Report Type: Report from Study
  Country: KR (occurrence: KR)
  Receive Date: 20171101
  Receipt Date: 20200226
  Transmission Date: 20200409
  Serious: Yes (Hospitalization)
  Sender: FDA-Public Use
  Company Number: KR-GILEAD-2017-0301304

PATIENT
  Age: 40 Year
  Sex: Male

DRUGS (7)
  1. ELVITEGRAVIR/COBICISTAT/EMTRICITABINE/TENOFOVIR ALAFENAMIDE [Suspect]
     Active Substance: COBICISTAT\ELVITEGRAVIR\EMTRICITABINE\TENOFOVIR
     Dosage: 1 DF, QD
     Route: 048
     Dates: start: 20171002
  2. MECKOOL [Concomitant]
     Indication: VOMITING
  3. ELVITEGRAVIR/COBICISTAT/EMTRICITABINE/TENOFOVIR ALAFENAMIDE [Suspect]
     Active Substance: COBICISTAT\ELVITEGRAVIR\EMTRICITABINE\TENOFOVIR
     Indication: HIV INFECTION
     Dosage: 1 DF, QD
     Route: 048
     Dates: start: 20170613, end: 20170930
  4. BONKY [Concomitant]
     Indication: OSTEOPOROSIS
  5. PENNEL                             /01570505/ [Concomitant]
     Indication: LIVER DISORDER
  6. SMECTA [Concomitant]
     Active Substance: MONTMORILLONITE
     Indication: DIARRHOEA
  7. GODEX                              /06761501/ [Concomitant]
     Indication: LIVER DISORDER

REACTIONS (5)
  - Hepatitis A [Recovered/Resolved]
  - Cataract [Recovering/Resolving]
  - Pain [Recovering/Resolving]
  - Ocular icterus [Recovering/Resolving]
  - Cough [Recovering/Resolving]

NARRATIVE: CASE EVENT DATE: 20170910
